FAERS Safety Report 18269811 (Version 3)
Quarter: 2020Q4

REPORT INFORMATION
  Report Type: Report from Study
  Country: BR (occurrence: BR)
  Receive Date: 20200915
  Receipt Date: 20201014
  Transmission Date: 20210113
  Serious: Yes (Hospitalization, Other)
  Sender: FDA-Public Use
  Company Number: NVSC2020BR251466

PATIENT
  Age: 51 Year
  Sex: Female

DRUGS (2)
  1. RYDAPT [Suspect]
     Active Substance: MIDOSTAURIN
     Indication: MASTOCYTOSIS
     Dosage: UNK
     Route: 065
     Dates: start: 202008
  2. DESLORATADINE. [Suspect]
     Active Substance: DESLORATADINE
     Indication: MASTOCYTOSIS
     Dosage: UNK
     Route: 065

REACTIONS (3)
  - Infection [Unknown]
  - Pneumonia [Unknown]
  - Anaemia [Unknown]
